FAERS Safety Report 12040412 (Version 1)
Quarter: 2016Q1

REPORT INFORMATION
  Report Type: Spontaneous
  Country: ES (occurrence: ES)
  Receive Date: 20160208
  Receipt Date: 20160208
  Transmission Date: 20160526
  Serious: Yes (Hospitalization)
  Sender: FDA-Public Use
  Company Number: ES-ROCHE-1707408

PATIENT
  Age: 61 Year
  Sex: Male

DRUGS (8)
  1. BONVIVA [Suspect]
     Active Substance: IBANDRONATE SODIUM
     Indication: PRODUCT USED FOR UNKNOWN INDICATION
     Route: 048
     Dates: start: 20121203
  2. AZITROMICINA [Concomitant]
     Active Substance: AZITHROMYCIN DIHYDRATE
     Route: 048
     Dates: start: 20160111
  3. PREDNISONA [Concomitant]
     Active Substance: PREDNISONE
     Route: 065
     Dates: start: 20150602
  4. PROGRAF [Interacting]
     Active Substance: TACROLIMUS\TACROLIMUS ANHYDROUS
     Indication: LUNG TRANSPLANT
     Route: 048
     Dates: start: 20150511
  5. MYFORTIC [Interacting]
     Active Substance: MYCOPHENOLATE SODIUM
     Indication: LUNG TRANSPLANT
     Route: 048
     Dates: start: 20150511
  6. OMEPRAZOL [Concomitant]
     Active Substance: OMEPRAZOLE
     Route: 048
     Dates: start: 20150603
  7. GANCICLOVIR. [Concomitant]
     Active Substance: GANCICLOVIR
     Route: 048
     Dates: start: 20160108
  8. SULFAMETHOXAZOLE AND TRIMETHOPRIM DS [Concomitant]
     Active Substance: SULFAMETHOXAZOLE\TRIMETHOPRIM
     Dosage: STRENGTH:160 MG/800 MG
     Route: 048
     Dates: start: 20150602

REACTIONS (3)
  - Hypocalcaemia [Recovered/Resolved]
  - Hypophosphataemia [Recovering/Resolving]
  - Hypomagnesaemia [Recovering/Resolving]

NARRATIVE: CASE EVENT DATE: 20160119
